FAERS Safety Report 6875891-5 (Version None)
Quarter: 2010Q3

REPORT INFORMATION
  Report Type: 
  Country: None (occurrence: None)
  Receive Date: 20100727
  Receipt Date: 20100722
  Transmission Date: 20110219
  Serious: Yes (Hospitalization)
  Sender: FDA-Public Use
  Company Number: FR-EISAI INC.-E2020-07106-SPO-FR

PATIENT
  Sex: Female

DRUGS (8)
  1. ARICEPT [Suspect]
     Route: 048
  2. EQUANIL [Concomitant]
     Dosage: 400 MG
     Route: 048
     Dates: start: 20090101
  3. EQUANIL [Concomitant]
     Dosage: UNKNOWN
  4. TIAPRIDE [Concomitant]
     Dosage: 150 MG
     Dates: start: 20090101, end: 20100608
  5. NOCTAMIDE [Concomitant]
     Dosage: 2 MG
     Route: 048
     Dates: start: 20090101, end: 20100608
  6. EUPRESSYL [Concomitant]
     Dosage: 60 MG
     Route: 048
     Dates: start: 20090101, end: 20100605
  7. CLONAZEPAM [Concomitant]
     Dates: start: 20100101, end: 20100605
  8. ZOLPIDEM [Concomitant]

REACTIONS (3)
  - HYPOTENSION [None]
  - HYPOTONIA [None]
  - SYNCOPE [None]
